FAERS Safety Report 9229506 (Version 1)
Quarter: 2013Q2

REPORT INFORMATION
  Report Type: Spontaneous
  Country: US (occurrence: US)
  Receive Date: 20130412
  Receipt Date: 20130412
  Transmission Date: 20140414
  Serious: Yes (Hospitalization)
  Sender: FDA-Public Use
  Company Number: US-B.I. PHARMACEUTICALS,INC./RIDGEFIELD-2013-BI-09376BP

PATIENT
  Age: 68 Year
  Sex: Female

DRUGS (4)
  1. SPIRIVA [Suspect]
     Indication: CHRONIC OBSTRUCTIVE PULMONARY DISEASE
     Dosage: 18 MCG
     Route: 055
     Dates: start: 201209
  2. TYVASO [Concomitant]
     Route: 055
  3. LETAIRIS [Concomitant]
     Route: 048
  4. REVATIO [Concomitant]
     Indication: PULMONARY HYPERTENSION
     Route: 048

REACTIONS (1)
  - Dyspnoea [Recovered/Resolved]
